FAERS Safety Report 12705791 (Version 1)
Quarter: 2016Q3

REPORT INFORMATION
  Report Type: Spontaneous
  Country: IT (occurrence: IT)
  Receive Date: 20160901
  Receipt Date: 20160901
  Transmission Date: 20161109
  Serious: Yes (Other)
  Sender: FDA-Public Use
  Company Number: IT-BAUSCH-BL-2016-020917

PATIENT
  Age: 50 Year
  Sex: Male

DRUGS (6)
  1. GENTAMICIN. [Suspect]
     Active Substance: GENTAMICIN
     Indication: LISTERIA ENCEPHALITIS
     Route: 042
     Dates: start: 2014
  2. AMPICILLIN [Suspect]
     Active Substance: AMPICILLIN
     Indication: MENINGITIS LISTERIA
     Route: 042
     Dates: start: 2014
  3. AMPICILLIN [Suspect]
     Active Substance: AMPICILLIN
     Indication: LISTERIA ENCEPHALITIS
  4. IMMUNOGLOBULINS [Concomitant]
     Active Substance: HUMAN IMMUNOGLOBULIN G
     Indication: LISTERIA ENCEPHALITIS
  5. GENTAMICIN. [Suspect]
     Active Substance: GENTAMICIN
     Indication: MENINGITIS LISTERIA
     Dosage: LOADING DOSE
     Route: 042
     Dates: start: 2014
  6. IMMUNOGLOBULINS [Concomitant]
     Active Substance: HUMAN IMMUNOGLOBULIN G
     Indication: MENINGITIS LISTERIA
     Dosage: 0.4 G/KG/DAY FOR 5 DAYS
     Route: 042
     Dates: start: 2014

REACTIONS (1)
  - Neuritis [Unknown]
